FAERS Safety Report 7176542-5 (Version None)
Quarter: 2010Q4

REPORT INFORMATION
  Report Type: 
  Country: None (occurrence: None)
  Receive Date: 20101220
  Receipt Date: 20101215
  Transmission Date: 20110411
  Serious: Yes (Other)
  Sender: FDA-Public Use
  Company Number: JP-PFIZER INC-2010159742

PATIENT
  Age: 64 Year
  Sex: Male

DRUGS (6)
  1. LYRICA [Suspect]
     Indication: POST HERPETIC NEURALGIA
     Dosage: 75 MG/DAY
     Route: 048
     Dates: start: 20100101, end: 20100101
  2. LYRICA [Suspect]
     Dosage: 150 MG/DAY
     Route: 048
     Dates: start: 20101101, end: 20101101
  3. LYRICA [Suspect]
     Dosage: 300MG/DAY
     Route: 048
     Dates: start: 20101101, end: 20101113
  4. MEXITIL [Suspect]
     Dosage: 300/DAY
     Route: 048
     Dates: start: 20101025, end: 20101113
  5. METHYCOBAL [Suspect]
     Dosage: 1500/DAY
     Route: 048
     Dates: start: 20101025, end: 20101113
  6. VALTREX [Suspect]
     Dosage: UNK
     Dates: start: 20101025, end: 20101031

REACTIONS (1)
  - DRUG ERUPTION [None]
